FAERS Safety Report 6993646-8 (Version None)
Quarter: 2010Q3

REPORT INFORMATION
  Report Type: 
  Country: None (occurrence: None)
  Receive Date: 20100917
  Receipt Date: 20071109
  Transmission Date: 20110219
  Serious: Yes (Hospitalization)
  Sender: FDA-Public Use
  Company Number: US-ASTRAZENECA-2006UW27496

PATIENT
  Age: 405 Month
  Sex: Female
  Weight: 104.3 kg

DRUGS (18)
  1. SEROQUEL [Suspect]
     Indication: BIPOLAR DISORDER
     Dosage: 25-100 MG
     Route: 048
     Dates: start: 20011106
  2. SEROQUEL [Suspect]
     Indication: DEPRESSION
     Dosage: 25-100 MG
     Route: 048
     Dates: start: 20011106
  3. SEROQUEL [Suspect]
     Indication: POST-TRAUMATIC STRESS DISORDER
     Dosage: 25-100 MG
     Route: 048
     Dates: start: 20011106
  4. SEROQUEL [Suspect]
     Indication: ANXIETY
     Dosage: 25-100 MG
     Route: 048
     Dates: start: 20011106
  5. SEROQUEL [Suspect]
     Indication: SLEEP DISORDER
     Dosage: 25-100 MG
     Route: 048
     Dates: start: 20011106
  6. SEROQUEL [Suspect]
     Route: 048
     Dates: start: 20011101
  7. SEROQUEL [Suspect]
     Route: 048
     Dates: start: 20011101
  8. SEROQUEL [Suspect]
     Route: 048
     Dates: start: 20011101
  9. SEROQUEL [Suspect]
     Route: 048
     Dates: start: 20011101
  10. SEROQUEL [Suspect]
     Route: 048
     Dates: start: 20011101
  11. THORAZINE [Concomitant]
     Dates: start: 20000101
  12. TOPAMAX [Concomitant]
     Indication: AFFECTIVE DISORDER
     Dosage: 100-200 MG
     Route: 048
     Dates: start: 20011106
  13. TOPAMAX [Concomitant]
     Indication: NIGHTMARE
     Dosage: 100-200 MG
     Route: 048
     Dates: start: 20011106
  14. TOPAMAX [Concomitant]
     Dosage: 75MG MORNING, 150MG NIGHT
     Dates: start: 20010101
  15. TOPAMAX [Concomitant]
     Dosage: 75MG MORNING, 150MG NIGHT
     Dates: start: 20010101
  16. EFFEXOR XR [Concomitant]
     Indication: AFFECTIVE DISORDER
     Dosage: 75-225 MG
     Route: 048
     Dates: start: 20011101
  17. EFFEXOR XR [Concomitant]
     Indication: ANXIETY
     Dosage: 75-225 MG
     Route: 048
     Dates: start: 20011101
  18. METFORMIN [Concomitant]
     Dosage: 500-1000 MG
     Route: 048
     Dates: start: 20040924

REACTIONS (6)
  - CHEST PAIN [None]
  - DIABETES MELLITUS [None]
  - MUSCULOSKELETAL CHEST PAIN [None]
  - SKIN ULCER [None]
  - TYPE 1 DIABETES MELLITUS [None]
  - TYPE 2 DIABETES MELLITUS [None]
